FAERS Safety Report 4898697-5 (Version None)
Quarter: 2006Q1

REPORT INFORMATION
  Report Type: 
  Country: None (occurrence: None)
  Receive Date: 20060130
  Receipt Date: 20060110
  Transmission Date: 20060701
  Serious: Yes (Hospitalization, Other)
  Sender: FDA-Public Use
  Company Number: MAG-2005-0000414

PATIENT
  Age: 85 Year
  Sex: Male

DRUGS (4)
  1. THEOPHYLLINE [Suspect]
     Indication: CHRONIC OBSTRUCTIVE PULMONARY DISEASE
     Dosage: 400 MG, DAILY, ORAL
     Route: 048
     Dates: start: 20051214, end: 20051220
  2. TULOBUTEROL (TULOBUTEROL) [Concomitant]
  3. MINOCYCLINE HYDROCHLORIDE [Concomitant]
  4. CEFTRIAXONE [Concomitant]

REACTIONS (3)
  - HYPOTHYROIDISM [None]
  - MYOSITIS [None]
  - RHABDOMYOLYSIS [None]
